FAERS Safety Report 12099646 (Version 1)
Quarter: 2016Q1

REPORT INFORMATION
  Report Type: Spontaneous
  Country: US (occurrence: None)
  Receive Date: 20160219
  Receipt Date: 20160219
  Transmission Date: 20160526
  Serious: No
  Sender: FDA-Public Use
  Company Number: None

PATIENT

DRUGS (2)
  1. MANNITOL (MANNITOL) NOVA PLUS [Suspect]
     Active Substance: MANNITOL
     Dosage: 12.5 GRAMS/50 ML SINGE DOSE VIAL 50 MML
     Route: 042
  2. DEXTROSE 50% DEXTROSE HOSPIRA, INC. [Suspect]
     Active Substance: DEXTROSE
     Dosage: 25 GRAMS/50 ML SINGLE DOSE, 50 ML

REACTIONS (1)
  - Product packaging confusion [None]
